FAERS Safety Report 6010030-4 (Version None)
Quarter: 2008Q4

REPORT INFORMATION
  Report Type: 
  Country: None (occurrence: None)
  Receive Date: 20081218
  Receipt Date: 20081205
  Transmission Date: 20090506
  Serious: Yes (Other)
  Sender: FDA-Public Use
  Company Number: JP-PFIZER INC-2008100986

PATIENT

DRUGS (4)
  1. ZOLOFT [Suspect]
     Indication: DEPRESSION
     Dosage: UNK
     Route: 048
     Dates: start: 20081118, end: 20081123
  2. TAKEPRON [Suspect]
     Route: 048
  3. ADOFEED [Suspect]
     Route: 062
  4. ALOSENN [Concomitant]

REACTIONS (1)
  - RESPIRATORY RATE DECREASED [None]
